FAERS Safety Report 10345968 (Version 1)
Quarter: 2014Q3

REPORT INFORMATION
  Report Type: Spontaneous
  Country: US (occurrence: US)
  Receive Date: 20140728
  Receipt Date: 20140728
  Transmission Date: 20150326
  Serious: No
  Sender: FDA-Public Use
  Company Number: US-GILEAD-2014-0110062

PATIENT
  Sex: Male

DRUGS (3)
  1. VELETRI [Concomitant]
     Active Substance: EPOPROSTENOL
  2. ADCIRCA [Concomitant]
     Active Substance: TADALAFIL
  3. LETAIRIS [Suspect]
     Active Substance: AMBRISENTAN
     Indication: PRODUCT USED FOR UNKNOWN INDICATION
     Dosage: 5 MG, QD
     Route: 065
     Dates: start: 20140420

REACTIONS (8)
  - International normalised ratio fluctuation [Unknown]
  - Pallor [Unknown]
  - Decreased appetite [Unknown]
  - Lacrimation increased [Unknown]
  - Nausea [Unknown]
  - Asthenia [Unknown]
  - Tremor [Unknown]
  - Abdominal pain upper [Unknown]
